FAERS Safety Report 7367910-7 (Version None)
Quarter: 2011Q1

REPORT INFORMATION
  Report Type: 
  Country: None (occurrence: None)
  Receive Date: 20110322
  Receipt Date: 20110107
  Transmission Date: 20110831
  Serious: Yes (Other)
  Sender: FDA-Public Use
  Company Number: JP-GENENTECH-312410

PATIENT
  Age: 69 Week

DRUGS (9)
  1. HOKUNALIN [Concomitant]
     Indication: PRODUCT USED FOR UNKNOWN INDICATION
  2. MEPTIN [Concomitant]
     Indication: PRODUCT USED FOR UNKNOWN INDICATION
  3. FLUTIDE [Concomitant]
     Indication: PRODUCT USED FOR UNKNOWN INDICATION
  4. SULTANOL [Concomitant]
     Indication: PRODUCT USED FOR UNKNOWN INDICATION
  5. MYSLEE [Concomitant]
     Indication: PRODUCT USED FOR UNKNOWN INDICATION
  6. OMALIZUMAB [Suspect]
     Indication: ASTHMA
     Dosage: UNK
     Route: 058
     Dates: start: 20090609
  7. OMALIZUMAB [Suspect]
     Dosage: UNK
     Dates: start: 20101220
  8. DORAL [Concomitant]
     Indication: PRODUCT USED FOR UNKNOWN INDICATION
  9. HALCION [Concomitant]
     Indication: PRODUCT USED FOR UNKNOWN INDICATION

REACTIONS (2)
  - EXTREMITY NECROSIS [None]
  - HYPOAESTHESIA [None]
